FAERS Safety Report 9603050 (Version 2)
Quarter: 2014Q1

REPORT INFORMATION
  Report Type: Spontaneous
  Country: US (occurrence: US)
  Receive Date: 20131007
  Receipt Date: 20140303
  Transmission Date: 20141002
  Serious: Yes (Other)
  Sender: FDA-Public Use
  Company Number: US-TEVA-436100USA

PATIENT
  Age: 28 Year
  Sex: Female
  Weight: 104.87 kg

DRUGS (1)
  1. PARAGARD 380A [Suspect]
     Indication: CONTRACEPTION
     Route: 015
     Dates: start: 20130905, end: 20130919

REACTIONS (1)
  - Embedded device [Recovered/Resolved]
